FAERS Safety Report 10152679 (Version 1)
Quarter: 2014Q2

REPORT INFORMATION
  Report Type: Spontaneous
  Country: US (occurrence: None)
  Receive Date: 20140502
  Receipt Date: 20140502
  Transmission Date: 20141212
  Serious: Yes (Hospitalization)
  Sender: FDA-Public Use
  Company Number: None

PATIENT
  Age: 70 Year
  Sex: Female
  Weight: 57.3 kg

DRUGS (1)
  1. INTRON-A (INTERFERON ALFA-2B) [Suspect]
     Dates: start: 20121102

REACTIONS (1)
  - Blood creatine phosphokinase increased [None]
